FAERS Safety Report 6982490-3 (Version None)
Quarter: 2010Q3

REPORT INFORMATION
  Report Type: 
  Country: None (occurrence: None)
  Receive Date: 20100914
  Receipt Date: 20100204
  Transmission Date: 20110219
  Serious: Yes (Other)
  Sender: FDA-Public Use
  Company Number: US-PFIZER INC-2009312521

PATIENT
  Sex: Female
  Weight: 86.168 kg

DRUGS (9)
  1. LYRICA [Suspect]
     Indication: FIBROMYALGIA
     Dosage: 75 MG, 1X/DAY
     Dates: start: 20091001
  2. LYRICA [Suspect]
     Dosage: 150 MG, 1X/DAY
     Dates: start: 20091029, end: 20100115
  3. REQUIP [Concomitant]
     Indication: RESTLESS LEGS SYNDROME
     Dosage: 0.5 MG, 3X/DAY
  4. REQUIP [Concomitant]
     Dosage: FREQUENCY: 3X/DAY,
  5. MORPHINE SULFATE [Concomitant]
     Indication: BREAKTHROUGH PAIN
     Dosage: 30 MG, 3X/DAY
  6. PERCOCET [Concomitant]
     Indication: BREAKTHROUGH PAIN
     Dosage: 10 MG/325 MG 4X/DAY
  7. LAMICTAL [Concomitant]
     Dosage: UNK
  8. VITAMIN B COMPLEX CAP [Concomitant]
     Dosage: UNK 1X/DAY
  9. PREVACID [Concomitant]
     Dosage: 20 MG, 1X/DAY

REACTIONS (4)
  - BLOOD GLUCOSE INCREASED [None]
  - INCREASED APPETITE [None]
  - PAIN [None]
  - WEIGHT INCREASED [None]
